FAERS Safety Report 8240141-4 (Version None)
Quarter: 2012Q1

REPORT INFORMATION
  Report Type: 
  Country: None (occurrence: None)
  Receive Date: 20120328
  Receipt Date: 20120322
  Transmission Date: 20120608
  Serious: Yes (Hospitalization)
  Sender: FDA-Public Use
  Company Number: US-BAYER-2012-002485

PATIENT
  Age: 29 Year
  Sex: Female
  Weight: 63.492 kg

DRUGS (5)
  1. FIORICET [Concomitant]
  2. YAZ [Suspect]
     Indication: CONTRACEPTION
     Dosage: UNK
     Route: 048
     Dates: start: 20071101, end: 20100301
  3. YAZ [Suspect]
     Indication: PREMENSTRUAL SYNDROME
  4. YAZ [Suspect]
  5. NEXIUM [Concomitant]

REACTIONS (7)
  - CHOLECYSTITIS CHRONIC [None]
  - DYSPNOEA [None]
  - ABDOMINAL PAIN UPPER [None]
  - BACK PAIN [None]
  - CHEST PAIN [None]
  - CHOLECYSTECTOMY [None]
  - VOMITING [None]
